FAERS Safety Report 10229943 (Version 1)
Quarter: 2014Q2

REPORT INFORMATION
  Report Type: Spontaneous
  Country: GB (occurrence: GB)
  Receive Date: 20140611
  Receipt Date: 20140611
  Transmission Date: 20141212
  Serious: Yes (Other)
  Sender: FDA-Public Use
  Company Number: GB-TEVA-487144ISR

PATIENT
  Sex: Male

DRUGS (3)
  1. VENLAFAXINE [Suspect]
     Indication: STRESS
     Dosage: 37.5 MILLIGRAM DAILY; HAS BEEN TAKING THEM FOR APPROXIMATELY 8 YEARS
     Route: 065
     Dates: end: 201311
  2. VENLAFAXINE [Suspect]
     Indication: ANXIETY
     Dosage: 18.75 MILLIGRAM DAILY;
     Route: 065
     Dates: start: 201311
  3. VENLAFAXINE [Suspect]
     Dosage: 37.5 MILLIGRAM DAILY;
     Route: 065

REACTIONS (9)
  - Drug dependence [Unknown]
  - Hypertension [Unknown]
  - Night sweats [Unknown]
  - Malaise [Unknown]
  - Depressed mood [Unknown]
  - Depression [Unknown]
  - Lethargy [Unknown]
  - Apathy [Unknown]
  - Confusional state [Unknown]
